FAERS Safety Report 11778613 (Version 2)
Quarter: 2015Q4

REPORT INFORMATION
  Report Type: Spontaneous
  Country: JP (occurrence: JP)
  Receive Date: 20151125
  Receipt Date: 20151210
  Transmission Date: 20160304
  Serious: Yes (Hospitalization, Other)
  Sender: FDA-Public Use
  Company Number: JP-DEP_13087_2015

PATIENT
  Age: 80 Year
  Sex: Male

DRUGS (9)
  1. DAIKENCHUTO [Concomitant]
     Active Substance: HERBALS
     Dosage: DF
  2. MIYA BM (CLOSTRIDIUM BUTYRICUM) [Concomitant]
     Dosage: DF
  3. CYTOTEC (MISOPROSTOL) [Concomitant]
     Dosage: DF
  4. MITOXANTRONE (MITOXANTRONE) [Concomitant]
     Dosage: DF
  5. CELECOX (CELECOXIB) [Concomitant]
     Active Substance: CELECOXIB
     Dosage: DF
  6. OXYNORM (OXYCODONE HYDROCHLORIDE) [Concomitant]
     Active Substance: OXYCODONE HYDROCHLORIDE
     Dosage: DF
  7. AMITIZA [Concomitant]
     Active Substance: LUBIPROSTONE
     Dosage: DF
  8. HEPARINOID (HEPARINOID) [Concomitant]
     Active Substance: CHONDROITIN SULFATE (BOVINE)
     Dosage: DF
  9. TAPENTA (TAPENTADOL) [Suspect]
     Active Substance: TAPENTADOL HYDROCHLORIDE
     Indication: CANCER PAIN
     Route: 048
     Dates: start: 20141001, end: 20151108

REACTIONS (3)
  - Ileus [Recovered/Resolved]
  - Delirium [Recovered/Resolved]
  - Mania [Recovered/Resolved]

NARRATIVE: CASE EVENT DATE: 20151109
